FAERS Safety Report 23404024 (Version 6)
Quarter: 2025Q2

REPORT INFORMATION
  Report Type: Spontaneous
  Country: US (occurrence: US)
  Receive Date: 20240116
  Receipt Date: 20250510
  Transmission Date: 20250716
  Serious: Yes (Other)
  Sender: SANOFI AVENTIS
  Company Number: US-SA-SAC20240111000811

PATIENT
  Age: 82 Year
  Sex: Female
  Weight: 53.64 kg

DRUGS (25)
  1. DUPIXENT [Suspect]
     Active Substance: DUPILUMAB
     Indication: Dermatitis atopic
     Route: 058
     Dates: start: 20220905, end: 20220905
  2. DUPIXENT [Suspect]
     Active Substance: DUPILUMAB
     Dosage: 300 MG, QOW
     Route: 058
     Dates: start: 202209, end: 20231012
  3. REVLIMID [Suspect]
     Active Substance: LENALIDOMIDE
     Indication: Plasma cell myeloma
     Route: 065
     Dates: start: 202212
  4. REVLIMID [Suspect]
     Active Substance: LENALIDOMIDE
     Route: 065
  5. ALBUTEROL [Concomitant]
     Active Substance: ALBUTEROL
  6. PEPCID [Concomitant]
     Active Substance: FAMOTIDINE
  7. MIRALAX [Concomitant]
     Active Substance: POLYETHYLENE GLYCOL 3350
  8. SYNTHROID [Concomitant]
     Active Substance: LEVOTHYROXINE SODIUM
  9. ASPIRIN [Concomitant]
     Active Substance: ASPIRIN
  10. ACYCLOVIR [Concomitant]
     Active Substance: ACYCLOVIR
  11. VITAMIN D3 [Concomitant]
     Active Substance: CHOLECALCIFEROL
  12. BIOTIN [Concomitant]
     Active Substance: BIOTIN
  13. PHENYLBUTAZONE [Concomitant]
     Active Substance: PHENYLBUTAZONE
  14. RESTASIS [Concomitant]
     Active Substance: CYCLOSPORINE
  15. SENNA S [Concomitant]
     Active Substance: DOCUSATE SODIUM\SENNOSIDES
  16. DEXAMETHASONE [Concomitant]
     Active Substance: DEXAMETHASONE
  17. VELCADE [Concomitant]
     Active Substance: BORTEZOMIB
  18. OMEPRAZOLE [Concomitant]
     Active Substance: OMEPRAZOLE
  19. CITRACAL + D3 [Concomitant]
  20. FERROUS SULFATE [Concomitant]
     Active Substance: FERROUS SULFATE
  21. ACYCLOVIR [Concomitant]
     Active Substance: ACYCLOVIR
  22. MIRALAX [Concomitant]
     Active Substance: POLYETHYLENE GLYCOL 3350
  23. VANCOMYCIN HYDROCHLORIDE [Concomitant]
     Active Substance: VANCOMYCIN HYDROCHLORIDE
  24. Citracal + D3 [Concomitant]
  25. PEPCID [Concomitant]
     Active Substance: FAMOTIDINE

REACTIONS (10)
  - Clostridium difficile colitis [Unknown]
  - Bronchitis [Unknown]
  - Cough [Unknown]
  - Wheezing [Unknown]
  - Dyspnoea [Unknown]
  - Fatigue [Unknown]
  - White blood cell count decreased [Unknown]
  - Blood potassium decreased [Unknown]
  - Gout [Unknown]
  - Nasopharyngitis [Unknown]

NARRATIVE: CASE EVENT DATE: 20221201
